FAERS Safety Report 20662053 (Version 1)
Quarter: 2022Q2

REPORT INFORMATION
  Report Type: Spontaneous
  Country: US (occurrence: US)
  Receive Date: 20220401
  Receipt Date: 20220401
  Transmission Date: 20220720
  Serious: Yes (Other)
  Sender: FDA-Public Use
  Company Number: US-SA-SAC20220330001029

PATIENT
  Age: 66 Year
  Sex: Male

DRUGS (1)
  1. ZANTAC [Suspect]
     Active Substance: RANITIDINE HYDROCHLORIDE
     Indication: Dyspepsia
     Dosage: 150 MG; QD
     Route: 065
     Dates: start: 201206, end: 201401

REACTIONS (2)
  - Colorectal cancer stage IV [Recovering/Resolving]
  - Hepatic cancer stage IV [Recovering/Resolving]

NARRATIVE: CASE EVENT DATE: 20130801
